FAERS Safety Report 15211773 (Version 1)
Quarter: 2018Q3

REPORT INFORMATION
  Report Type: Spontaneous
  Country: DE (occurrence: DE)
  Receive Date: 20180729
  Receipt Date: 20180729
  Transmission Date: 20181010
  Serious: Yes (Other)
  Sender: FDA-Public Use
  Company Number: PHHY2018DE053466

PATIENT
  Age: 1 Day
  Sex: Female

DRUGS (8)
  1. L?THYROXINE [Concomitant]
     Active Substance: LEVOTHYROXINE
     Indication: FOETAL EXPOSURE DURING PREGNANCY
     Dosage: 25 [?G/D ]/ ALTERNATING 12.5 AND 25 ?G/D
     Route: 064
  2. CYTOTEC [Concomitant]
     Active Substance: MISOPROSTOL
     Indication: FOETAL EXPOSURE DURING PREGNANCY
     Route: 064
  3. PROTHYRID [Concomitant]
     Active Substance: LEVOTHYROXINE SODIUM
     Indication: FOETAL EXPOSURE DURING PREGNANCY
     Dosage: 50 [?G/D ] / 5 [?G/D ]
     Route: 064
     Dates: start: 20170326, end: 20171225
  4. VIGANTOLETTEN [Concomitant]
     Active Substance: CHOLECALCIFEROL
     Indication: FOETAL EXPOSURE DURING PREGNANCY
     Dosage: 1000 [I.E./D ]
     Route: 064
     Dates: start: 20170326, end: 20171225
  5. LEVETIRACETAM. [Suspect]
     Active Substance: LEVETIRACETAM
     Indication: FOETAL EXPOSURE DURING PREGNANCY
     Dosage: MATERNAL DOSE: 1000 MG, QD
     Route: 064
  6. FOLSAN [Concomitant]
     Active Substance: FOLIC ACID
     Indication: FOETAL EXPOSURE DURING PREGNANCY
     Dosage: 5 [MG/D ]
     Route: 064
     Dates: start: 20170326, end: 20171225
  7. MISODEL [Concomitant]
     Indication: FOETAL EXPOSURE DURING PREGNANCY
     Route: 064
  8. INFLUVAC [Concomitant]
     Active Substance: INFLUENZA VIRUS VACCINE TRIVALENT TYPE A+B
     Indication: FOETAL EXPOSURE DURING PREGNANCY
     Route: 064

REACTIONS (4)
  - Respiratory disorder neonatal [Recovered/Resolved]
  - Temperature regulation disorder [Recovered/Resolved]
  - Foetal exposure during pregnancy [Unknown]
  - Small for dates baby [Recovering/Resolving]

NARRATIVE: CASE EVENT DATE: 20171225
